FAERS Safety Report 14630838 (Version 3)
Quarter: 2018Q2

REPORT INFORMATION
  Report Type: Spontaneous
  Country: GB (occurrence: GR)
  Receive Date: 20180313
  Receipt Date: 20180416
  Transmission Date: 20180711
  Serious: Yes (Life-Threatening, Hospitalization, Other)
  Sender: FDA-Public Use
  Company Number: GB-SA-2018SA065986

PATIENT
  Age: 76 Year
  Sex: Male

DRUGS (8)
  1. WARFARIN SODIUM. [Interacting]
     Active Substance: WARFARIN SODIUM
     Indication: ANTICOAGULANT THERAPY
     Route: 065
  2. WARFARIN SODIUM. [Interacting]
     Active Substance: WARFARIN SODIUM
     Indication: ANTICOAGULANT THERAPY
     Route: 065
  3. ASPIRIN. [Interacting]
     Active Substance: ASPIRIN
     Indication: CARDIOVASCULAR EVENT PROPHYLAXIS
     Route: 065
  4. ASPIRIN. [Interacting]
     Active Substance: ASPIRIN
     Indication: ANTIPLATELET THERAPY
     Route: 065
  5. ASPIRIN. [Interacting]
     Active Substance: ASPIRIN
     Indication: CARDIOVASCULAR EVENT PROPHYLAXIS
     Route: 065
  6. WARFARIN SODIUM. [Interacting]
     Active Substance: WARFARIN SODIUM
     Indication: ANTICOAGULANT THERAPY
     Route: 065
  7. ASPIRIN. [Interacting]
     Active Substance: ASPIRIN
     Indication: ANTIPLATELET THERAPY
     Route: 065
  8. CLOPIDOGREL HYDROGEN SULFATE [Suspect]
     Active Substance: CLOPIDOGREL BISULFATE
     Indication: ANTIPLATELET THERAPY
     Route: 065

REACTIONS (15)
  - Dressler^s syndrome [Recovered/Resolved]
  - Shock [Recovered/Resolved]
  - Renal injury [Recovered/Resolved]
  - Anaemia [Recovered/Resolved]
  - Labelled drug-drug interaction medication error [Unknown]
  - Melaena [Recovered/Resolved]
  - Contraindicated product administered [Unknown]
  - Cardiac aneurysm [Unknown]
  - Hypotension [Recovered/Resolved]
  - Cardiac tamponade [Recovered/Resolved]
  - Gastric haemorrhage [Recovered/Resolved]
  - Drug administration error [Unknown]
  - Blood lactic acid increased [Recovered/Resolved]
  - Right ventricular diastolic collapse [Unknown]
  - Shock haemorrhagic [Recovered/Resolved]
